FAERS Safety Report 16351718 (Version 1)
Quarter: 2019Q2

REPORT INFORMATION
  Report Type: Spontaneous
  Country: US (occurrence: US)
  Receive Date: 20190524
  Receipt Date: 20190524
  Transmission Date: 20190711
  Serious: No
  Sender: FDA-Public Use
  Company Number: US-NOVEN PHARMACEUTICALS, INC.-US2018000249

PATIENT

DRUGS (3)
  1. DAYTRANA [Suspect]
     Active Substance: METHYLPHENIDATE
     Indication: IMPULSE-CONTROL DISORDER
     Dosage: 15 MG, UNKNOWN
     Route: 062
  2. RISPERIDONE. [Concomitant]
     Active Substance: RISPERIDONE
     Indication: ANGER
     Dosage: 0.25 MG, 1 MG IN MORNING AND 1.5 MG AT NIGHT
  3. DAYTRANA [Suspect]
     Active Substance: METHYLPHENIDATE
     Indication: ATTENTION DEFICIT/HYPERACTIVITY DISORDER
     Dosage: 10 MG, UNKNOWN
     Route: 062
     Dates: start: 201710

REACTIONS (9)
  - Panic attack [Unknown]
  - Application site pain [Not Recovered/Not Resolved]
  - Application site erythema [Recovered/Resolved]
  - Fear [Unknown]
  - Product adhesion issue [Unknown]
  - Tachycardia [Unknown]
  - Anxiety [Unknown]
  - Impulsive behaviour [Unknown]
  - Application site pruritus [Recovered/Resolved]
